FAERS Safety Report 4353454-3 (Version None)
Quarter: 2004Q2

REPORT INFORMATION
  Report Type: 
  Country: None (occurrence: None)
  Receive Date: 20040429
  Receipt Date: 20040429
  Transmission Date: 20050107
  Serious: No
  Sender: FDA-Public Use
  Company Number: None

PATIENT
  Age: 21 Year
  Sex: Female
  Weight: 173 kg

DRUGS (3)
  1. RISPERIDONE [Suspect]
     Indication: SCHIZOPHRENIA
     Dosage: 2  DF DAILY PO
     Route: 048
     Dates: start: 20030915, end: 20030918
  2. TEGRETOL [Suspect]
     Indication: CONVULSION
     Dosage: 200 MG BID PO
     Route: 048
     Dates: start: 20030503, end: 20030923
  3. RISPERDALE [Concomitant]

REACTIONS (3)
  - HYPERSENSITIVITY [None]
  - RASH MACULO-PAPULAR [None]
  - RASH PRURITIC [None]
